FAERS Safety Report 8559682-5 (Version None)
Quarter: 2012Q3

REPORT INFORMATION
  Report Type: 
  Country: None (occurrence: None)
  Receive Date: 20120802
  Receipt Date: 20120725
  Transmission Date: 20120928
  Serious: Yes (Hospitalization, Other)
  Sender: FDA-Public Use
  Company Number: US-ASTELLAS-2012US006420

PATIENT
  Sex: Female
  Weight: 58 kg

DRUGS (8)
  1. THEOPHYLLINE [Concomitant]
     Indication: ASTHMA
     Dosage: 200 MG, UID/QD
     Route: 048
     Dates: start: 19800101
  2. ERLOTINIB HYDROCHLORIDE [Suspect]
     Dosage: 100 MG, UID/QD
     Route: 048
     Dates: start: 20120713
  3. LORAZEPAM [Concomitant]
     Indication: ANXIETY
     Dosage: UNK
     Route: 065
     Dates: start: 20070101
  4. PULMICORT [Concomitant]
     Indication: ASTHMA
     Dosage: 180 UG, UNKNOWN/D
     Route: 065
     Dates: start: 19800101
  5. PANTOPRAZOLE [Concomitant]
     Indication: PRODUCT USED FOR UNKNOWN INDICATION
     Dosage: 40 MG, UID/QD
     Route: 048
     Dates: start: 20050101
  6. MIRALAX                            /00754501/ [Concomitant]
     Indication: CONSTIPATION
     Dosage: UNK
     Route: 048
     Dates: start: 20070101
  7. ERLOTINIB HYDROCHLORIDE [Suspect]
     Indication: NON-SMALL CELL LUNG CANCER
     Dosage: 100 MG, UID/QD
     Route: 048
     Dates: start: 20110901, end: 20120501
  8. TYLENOL (CAPLET) [Concomitant]
     Indication: PAIN
     Dosage: UNK
     Route: 048

REACTIONS (8)
  - NEOPLASM MALIGNANT [None]
  - TREMOR [None]
  - BLOOD PRESSURE DECREASED [None]
  - ACNE [None]
  - INCORRECT DOSE ADMINISTERED [None]
  - HEART RATE INCREASED [None]
  - PALPITATIONS [None]
  - DIARRHOEA [None]
